FAERS Safety Report 8251404-0 (Version None)
Quarter: 2012Q1

REPORT INFORMATION
  Report Type: 
  Country: None (occurrence: None)
  Receive Date: 20120321
  Receipt Date: 20110311
  Transmission Date: 20120608
  Serious: No
  Sender: FDA-Public Use
  Company Number: PHHY2011US20912

PATIENT
  Age: 44 Year
  Sex: Female

DRUGS (1)
  1. ILARIS [Suspect]
     Dosage: 150 MG, SUBCUTANEOUS
     Route: 058

REACTIONS (2)
  - WEIGHT INCREASED [None]
  - ARTHRALGIA [None]
